FAERS Safety Report 16691868 (Version 1)
Quarter: 2019Q3

REPORT INFORMATION
  Report Type: Spontaneous
  Country: US (occurrence: US)
  Receive Date: 20190812
  Receipt Date: 20190812
  Transmission Date: 20191004
  Serious: No
  Sender: FDA-Public Use
  Company Number: US-TEVA-2019-US-1091495

PATIENT

DRUGS (1)
  1. IMATINIB MESYLATE. [Suspect]
     Active Substance: IMATINIB MESYLATE
     Route: 065

REACTIONS (3)
  - Chills [Unknown]
  - Pruritus [Unknown]
  - Product physical issue [Unknown]
